FAERS Safety Report 15209104 (Version 2)
Quarter: 2021Q2

REPORT INFORMATION
  Report Type: Spontaneous
  Country: US (occurrence: US)
  Receive Date: 20180727
  Receipt Date: 20210409
  Transmission Date: 20210716
  Serious: Yes (Disabling)
  Sender: FDA-Public Use
  Company Number: US-TEVA-2018-US-932663

PATIENT
  Age: 57 Year
  Sex: Female

DRUGS (6)
  1. ADVAIR HFA [Concomitant]
     Active Substance: FLUTICASONE PROPIONATE\SALMETEROL XINAFOATE
  2. SPIRIVA [Concomitant]
     Active Substance: TIOTROPIUM BROMIDE MONOHYDRATE
  3. CARBOPLATIN. [Concomitant]
     Active Substance: CARBOPLATIN
     Indication: BREAST CANCER FEMALE
     Dates: start: 20130611, end: 20130903
  4. AMLODIPINE [Concomitant]
     Active Substance: AMLODIPINE BESYLATE
  5. DOCETAXEL. [Suspect]
     Active Substance: DOCETAXEL
     Indication: BREAST CANCER FEMALE
     Dates: start: 20130611, end: 20130903
  6. TRASTUZUMAB. [Concomitant]
     Active Substance: TRASTUZUMAB
     Indication: BREAST CANCER FEMALE
     Dates: start: 20130611

REACTIONS (1)
  - Alopecia areata [Not Recovered/Not Resolved]

NARRATIVE: CASE EVENT DATE: 20130714
